FAERS Safety Report 25180522 (Version 2)
Quarter: 2025Q2

REPORT INFORMATION
  Report Type: Spontaneous
  Country: RO (occurrence: RO)
  Receive Date: 20250409
  Receipt Date: 20250422
  Transmission Date: 20250717
  Serious: Yes (Hospitalization, Other)
  Sender: MYLAN
  Company Number: RO-002147023-NVSC2025RO047033

PATIENT
  Age: 83 Year
  Sex: Male

DRUGS (7)
  1. IMATINIB [Suspect]
     Active Substance: IMATINIB
     Indication: Chronic myeloid leukaemia
     Dosage: 400 MILLIGRAM, QD
     Dates: start: 202002, end: 202007
  2. IMATINIB [Suspect]
     Active Substance: IMATINIB
     Dosage: 200 MILLIGRAM, QD
     Dates: end: 202012
  3. IMATINIB [Suspect]
     Active Substance: IMATINIB
     Dosage: 200 MILLIGRAM, QD
     Dates: end: 202106
  4. IMATINIB [Suspect]
     Active Substance: IMATINIB
     Dosage: 400 MILLIGRAM, QD
     Dates: start: 202106, end: 202306
  5. SCEMBLIX [Suspect]
     Active Substance: ASCIMINIB HYDROCHLORIDE
     Indication: Chronic myeloid leukaemia
     Dosage: 40 MILLIGRAM, BID (80 MG, QD)
     Dates: start: 20240207, end: 20240226
  6. SCEMBLIX [Suspect]
     Active Substance: ASCIMINIB HYDROCHLORIDE
     Dosage: 20 MILLIGRAM, BID (40 MG, QD)
     Dates: start: 20250402
  7. ERYTHROPOIETIN [Concomitant]
     Active Substance: ERYTHROPOIETIN
     Indication: Product used for unknown indication

REACTIONS (14)
  - Cardiac failure [Unknown]
  - Electrocardiogram QT prolonged [Unknown]
  - Renal impairment [Unknown]
  - Neutropenia [Unknown]
  - Gastritis [Unknown]
  - Melaena [Unknown]
  - Pulmonary congestion [Unknown]
  - Diarrhoea [Unknown]
  - Diverticulum intestinal [Unknown]
  - Weight decreased [Recovered/Resolved]
  - Decreased appetite [Recovered/Resolved]
  - Anaemia [Unknown]
  - Asthenia [Recovering/Resolving]
  - Eyelid bleeding [Unknown]

NARRATIVE: CASE EVENT DATE: 20200201
